FAERS Safety Report 23755724 (Version 2)
Quarter: 2024Q2

REPORT INFORMATION
  Report Type: Spontaneous
  Country: JP (occurrence: JP)
  Receive Date: 20240418
  Receipt Date: 20240516
  Transmission Date: 20240716
  Serious: Yes (Hospitalization, Other)
  Sender: FDA-Public Use
  Company Number: JP-VANTIVE-2024VAN016024

PATIENT
  Sex: Female

DRUGS (2)
  1. REGUNEAL LCA [Suspect]
     Active Substance: CALCIUM CHLORIDE\DEXTROSE MONOHYDRATE\HYDROCHLORIC ACID\MAGNESIUM CHLORIDE\SODIUM BICARBONATE\SODIUM
     Indication: End stage renal disease
     Dosage: 10000 ML
     Route: 033
  2. EXTRANEAL [Suspect]
     Active Substance: CALCIUM CHLORIDE\ICODEXTRIN\MAGNESIUM CHLORIDE\SODIUM CHLORIDE\SODIUM LACTATE
     Indication: End stage renal disease
     Dosage: 1500 ML
     Route: 033

REACTIONS (3)
  - Peritonitis bacterial [Recovered/Resolved]
  - Abdominal pain [Recovering/Resolving]
  - Peritoneal cloudy effluent [Recovering/Resolving]

NARRATIVE: CASE EVENT DATE: 20240401
